FAERS Safety Report 10560453 (Version 2)
Quarter: 2014Q4

REPORT INFORMATION
  Report Type: Spontaneous
  Country: US (occurrence: US)
  Receive Date: 20141103
  Receipt Date: 20141103
  Transmission Date: 20150529
  Serious: No
  Sender: FDA-Public Use
  Company Number: US-SA-POMP-1001374

PATIENT
  Age: 31 Year
  Sex: Female

DRUGS (2)
  1. LUMIZYME [Suspect]
     Active Substance: ALGLUCOSIDASE ALFA
     Indication: GLYCOGEN STORAGE DISEASE TYPE II
     Dosage: 2450 MG, Q2W
     Route: 042
     Dates: start: 20101111
  2. LUMIZYME [Suspect]
     Active Substance: ALGLUCOSIDASE ALFA
     Indication: GLYCOGEN STORAGE DISEASE TYPE II
     Dosage: 20 MG/KG, Q2W
     Route: 042
     Dates: start: 20110328

REACTIONS (2)
  - Fatigue [Recovered/Resolved]
  - Feeling of body temperature change [Recovered/Resolved]

NARRATIVE: CASE EVENT DATE: 20110222
